FAERS Safety Report 14565491 (Version 2)
Quarter: 2018Q1

REPORT INFORMATION
  Report Type: Spontaneous
  Country: US (occurrence: US)
  Receive Date: 20180223
  Receipt Date: 20180320
  Transmission Date: 20180509
  Serious: Yes (Other)
  Sender: FDA-Public Use
  Company Number: US-ACCORD-063664

PATIENT
  Age: 55 Year
  Sex: Male

DRUGS (3)
  1. PREDNISONE. [Concomitant]
     Active Substance: PREDNISONE
     Indication: ACUTE GRAFT VERSUS HOST DISEASE
  2. TACROLIMUS. [Suspect]
     Active Substance: TACROLIMUS
     Indication: ACUTE GRAFT VERSUS HOST DISEASE
     Dosage: 2 MG TWICE A DAYDECREASED TO 1 MG TWICE A DAY, THEN 0.5 MG TWICE A DAY
  3. MELPHALAN. [Concomitant]
     Active Substance: MELPHALAN
     Indication: ACUTE GRAFT VERSUS HOST DISEASE

REACTIONS (2)
  - Drug level above therapeutic [Unknown]
  - Optic neuropathy [Recovering/Resolving]
